FAERS Safety Report 6420384-2 (Version None)
Quarter: 2009Q4

REPORT INFORMATION
  Report Type: 
  Country: None (occurrence: None)
  Receive Date: 20091029
  Receipt Date: 20091016
  Transmission Date: 20100525
  Serious: Yes (Other)
  Sender: FDA-Public Use
  Company Number: GR-ELI_LILLY_AND_COMPANY-GR200907001726

PATIENT
  Age: 24 Year
  Sex: Female

DRUGS (3)
  1. CYMBALTA [Suspect]
     Indication: PANIC ATTACK
     Dosage: 30 MG, DAILY (1/D)
     Route: 048
     Dates: start: 20090609, end: 20090616
  2. CYMBALTA [Suspect]
     Dosage: UNK, DAILY (1/D), HIGHER THAN 30MG DOSE
     Route: 048
     Dates: start: 20090617, end: 20090630
  3. XANAX [Concomitant]
     Indication: PANIC ATTACK
     Dosage: 0.5 MG, DAILY (1/D)
     Route: 048
     Dates: start: 20090609, end: 20090630

REACTIONS (2)
  - HEPATOTOXICITY [None]
  - OFF LABEL USE [None]
